FAERS Safety Report 4432264-2 (Version None)
Quarter: 2004Q3

REPORT INFORMATION
  Report Type: 
  Country: None (occurrence: None)
  Receive Date: 20040825
  Receipt Date: 20040720
  Transmission Date: 20050211
  Serious: Yes (Hospitalization)
  Sender: FDA-Public Use
  Company Number: JP-MERCK-0407USA01769

PATIENT
  Age: 37 Year
  Sex: Female
  Weight: 47 kg

DRUGS (2)
  1. CLAFORAN [Concomitant]
     Route: 041
     Dates: start: 20040630, end: 20040703
  2. PRIMAXIN [Suspect]
     Indication: PYREXIA
     Route: 041
     Dates: start: 20040703, end: 20040707

REACTIONS (2)
  - BODY TEMPERATURE DECREASED [None]
  - NEUTROPENIA [None]
